FAERS Safety Report 6552776-5 (Version None)
Quarter: 2010Q1

REPORT INFORMATION
  Report Type: 
  Country: None (occurrence: None)
  Receive Date: 20100126
  Receipt Date: 20100119
  Transmission Date: 20100710
  Serious: Yes (Hospitalization)
  Sender: FDA-Public Use
  Company Number: IT-ABBOTT-09P-083-0610323-00

PATIENT
  Sex: Male

DRUGS (4)
  1. KLACID [Suspect]
     Indication: BRONCHITIS
     Route: 048
     Dates: start: 20091112, end: 20091117
  2. LEVOXACIN [Suspect]
     Indication: BRONCHITIS
     Route: 048
     Dates: start: 20091118, end: 20091121
  3. PARACETAMOL [Concomitant]
     Indication: HYPERPYREXIA
     Route: 048
     Dates: start: 20091118, end: 20091121
  4. FULCROSUPRA [Concomitant]
     Indication: HYPERCHOLESTEROLAEMIA
     Route: 048

REACTIONS (1)
  - PURPURA [None]
